FAERS Safety Report 5489361-2 (Version None)
Quarter: 2007Q4

REPORT INFORMATION
  Report Type: 
  Country: None (occurrence: None)
  Receive Date: 20071018
  Receipt Date: 20071005
  Transmission Date: 20080405
  Serious: Yes (Hospitalization, Other)
  Sender: FDA-Public Use
  Company Number: US-ELI_LILLY_AND_COMPANY-US200708003583

PATIENT
  Sex: Female
  Weight: 86.621 kg

DRUGS (17)
  1. ALIMTA [Suspect]
     Indication: NON-SMALL CELL LUNG CANCER
     Dosage: 980 MG, UNK
     Dates: start: 20070731
  2. GEMZAR [Suspect]
     Indication: NON-SMALL CELL LUNG CANCER
     Dosage: 2000 MG, UNK
     Dates: start: 20070711, end: 20070717
  3. CARBOPLATIN [Concomitant]
     Indication: NON-SMALL CELL LUNG CANCER
     Dosage: 360 MG, UNK
     Dates: start: 20070717, end: 20070717
  4. CYCLOSPORINE [Concomitant]
     Indication: NEPHROTIC SYNDROME
     Dosage: 100 MG, DAILY (1/D)
     Route: 048
     Dates: start: 20060101
  5. FOLIC ACID [Concomitant]
     Dosage: 1 MG, DAILY (1/D)
     Route: 048
  6. VITAMIN B-12 [Concomitant]
     Dosage: UNK, UNK
  7. DEXAMETHASONE 0.5MG TAB [Concomitant]
     Dosage: 4 MG, OTHER
     Dates: start: 20070730
  8. ZOCOR [Concomitant]
     Dosage: 40 MG, DAILY (1/D)
     Route: 048
  9. POTASSIUM CHLORIDE [Concomitant]
     Indication: SUPPLEMENTATION THERAPY
  10. LASIX [Concomitant]
     Dosage: 80 MG, DAILY (1/D)
     Route: 048
  11. ZOLOFT [Concomitant]
     Dosage: 50 MG, 2/D
     Route: 048
  12. AMBIEN [Concomitant]
     Dosage: 12.5 MG, DAILY (1/D)
  13. PROTONIX                           /01263201/ [Concomitant]
     Dosage: 40 MG, DAILY (1/D)
     Route: 048
  14. ADVAIR DISKUS 100/50 [Concomitant]
     Dosage: UNK, AS NEEDED
     Route: 055
  15. ALBUTEROL [Concomitant]
     Dosage: UNK, AS NEEDED
     Route: 055
  16. DIOVAN [Concomitant]
     Dosage: 80 MG, DAILY (1/D)
     Route: 048
  17. ANTACID TAB [Concomitant]

REACTIONS (13)
  - ALANINE AMINOTRANSFERASE INCREASED [None]
  - ANAEMIA [None]
  - ASPARTATE AMINOTRANSFERASE INCREASED [None]
  - BLOOD ALKALINE PHOSPHATASE INCREASED [None]
  - BLOOD GLUCOSE INCREASED [None]
  - CELLULITIS [None]
  - DEHYDRATION [None]
  - NAUSEA [None]
  - NEUTROPENIA [None]
  - PAIN [None]
  - PLATELET COUNT INCREASED [None]
  - RASH [None]
  - VOMITING [None]
